FAERS Safety Report 9235891 (Version 1)
Quarter: 2013Q1

REPORT INFORMATION
  Report Type: Spontaneous
  Country: US (occurrence: None)
  Receive Date: 20121031
  Receipt Date: 20121031
  Transmission Date: 20140127
  Serious: No
  Sender: FDA-Public Use
  Company Number: PHEH2012US011309

PATIENT
  Age: 37 Year
  Sex: Female
  Weight: 149 kg

DRUGS (5)
  1. GILENYA (FTY) CAPSULE, 0.5MG [Suspect]
     Indication: MULTIPLE SCLEROSIS
     Route: 048
     Dates: start: 20120106
  2. VITAMIN D (ERGOCALCIFEROL) [Concomitant]
  3. VITAMIN B12 (CYANOCOBALAMIN) [Concomitant]
  4. FISH OIL (FISH OIL) [Concomitant]
  5. MULTIVITAMINS (ASCORBIC ACID, ERGOCALCIFEROL, FOLIC ACID, NICOTINAMIDE, PANTHENOL, RETINOL, RIBOFLAVIN, THIAMINE HYDROCHLORIDE) [Concomitant]

REACTIONS (6)
  - Eczema [None]
  - Overdose [None]
  - Acne [None]
  - Arthralgia [None]
  - Fatigue [None]
  - Feeling abnormal [None]
